FAERS Safety Report 12471561 (Version 2)
Quarter: 2022Q2

REPORT INFORMATION
  Report Type: Report from Study
  Country: CO (occurrence: CO)
  Receive Date: 20160616
  Receipt Date: 20220525
  Transmission Date: 20220721
  Serious: Yes (Life-Threatening, Other)
  Sender: FDA-Public Use
  Company Number: CO-ASTELLAS-2016US022994

PATIENT
  Age: 51 Year
  Sex: Female
  Weight: 63 kg

DRUGS (1)
  1. TACROLIMUS [Suspect]
     Active Substance: TACROLIMUS
     Indication: Renal transplant
     Route: 048
     Dates: start: 20150720, end: 20150820

REACTIONS (2)
  - Renal vein thrombosis [Not Recovered/Not Resolved]
  - Renal necrosis [Not Recovered/Not Resolved]

NARRATIVE: CASE EVENT DATE: 20150820
